FAERS Safety Report 8984713 (Version 1)
Quarter: 2012Q4

REPORT INFORMATION
  Report Type: Spontaneous
  Country: US (occurrence: None)
  Receive Date: 20121217
  Receipt Date: 20121217
  Transmission Date: 20130627
  Serious: Yes (Other)
  Sender: FDA-Public Use
  Company Number: 2012EXPUS00057

PATIENT
  Age: 44 Year
  Sex: Female
  Weight: 65.8 kg

DRUGS (3)
  1. EXPAREL [Suspect]
     Indication: POSTOPERATIVE ANALGESIA
     Dosage: 1x, infiltration
     Route: 048
     Dates: start: 20121119, end: 20121119
  2. VIIBRYD (VILAZODONE HYDROCHLORIDE) [Concomitant]
  3. PROVENTIL HFA (SALBUTAMOL) [Concomitant]

REACTIONS (4)
  - Supraventricular tachycardia [None]
  - Flushing [None]
  - Hypersensitivity [None]
  - Hypotension [None]
